FAERS Safety Report 21975884 (Version 1)
Quarter: 2023Q1

REPORT INFORMATION
  Report Type: Spontaneous
  Country: GB (occurrence: GB)
  Receive Date: 20230210
  Receipt Date: 20230210
  Transmission Date: 20230417
  Serious: Yes (Other)
  Sender: FDA-Public Use
  Company Number: None

PATIENT
  Age: 65 Year
  Sex: Female
  Weight: 60 kg

DRUGS (8)
  1. AMLODIPINE [Suspect]
     Active Substance: AMLODIPINE BESYLATE
     Indication: Product used for unknown indication
     Dates: start: 20230120
  2. ADIPINE MR [Concomitant]
     Indication: Product used for unknown indication
     Dates: start: 20221103, end: 20221202
  3. BETAHISTINE [Concomitant]
     Active Substance: BETAHISTINE
     Indication: Excessive cerumen production
     Dosage: THREE TIMES A DAY
     Dates: start: 20221121, end: 20230117
  4. NIDEF [Concomitant]
     Indication: Essential hypertension
     Route: 048
     Dates: start: 20221031, end: 20221129
  5. PROCHLORPERAZINE [Concomitant]
     Active Substance: PROCHLORPERAZINE
     Indication: Otitis externa
     Dosage: 5-10MG TDS
     Dates: start: 20221206, end: 20230118
  6. SODIUM BICARBONATE [Concomitant]
     Active Substance: SODIUM BICARBONATE
     Indication: Excessive cerumen production
     Dosage: APPLY 2-3 DROPS TWICE DAILY WHEN LYING DOWN TO BOTH EARS.
     Dates: start: 20221121, end: 20230103
  7. NIFEDIPINE [Concomitant]
     Active Substance: NIFEDIPINE
     Indication: Product used for unknown indication
     Dates: start: 20221103, end: 20221108
  8. TRAZODONE [Concomitant]
     Active Substance: TRAZODONE HYDROCHLORIDE
     Indication: Product used for unknown indication
     Dates: start: 20221201, end: 20221230

REACTIONS (4)
  - Burning sensation [Unknown]
  - Urinary retention [Unknown]
  - Dyspnoea [Unknown]
  - Cough [Unknown]

NARRATIVE: CASE EVENT DATE: 20230123
